FAERS Safety Report 7410311-3 (Version None)
Quarter: 2011Q2

REPORT INFORMATION
  Report Type: 
  Country: None (occurrence: None)
  Receive Date: 20110412
  Receipt Date: 20110401
  Transmission Date: 20111010
  Serious: Yes (Hospitalization)
  Sender: FDA-Public Use
  Company Number: US-BAXTER-2011BH009380

PATIENT
  Age: 71 Year
  Sex: Female

DRUGS (3)
  1. DIANEAL [Suspect]
     Indication: PERITONEAL DIALYSIS
     Route: 033
     Dates: start: 20110301
  2. DIANEAL [Suspect]
     Indication: PERITONEAL DIALYSIS
     Route: 033
     Dates: start: 20090101, end: 20110201
  3. DIANEAL [Suspect]
     Route: 033
     Dates: start: 20090101, end: 20110204

REACTIONS (3)
  - PERITONEAL EFFLUENT ABNORMAL [None]
  - GALLBLADDER NON-FUNCTIONING [None]
  - INFECTION [None]
